FAERS Safety Report 6968737-8 (Version None)
Quarter: 2010Q3

REPORT INFORMATION
  Report Type: 
  Country: None (occurrence: None)
  Receive Date: 20100907
  Receipt Date: 20100826
  Transmission Date: 20110219
  Serious: Yes (Other)
  Sender: FDA-Public Use
  Company Number: JP-MERCK-1005USA03095

PATIENT
  Age: 27 Year
  Sex: Male

DRUGS (17)
  1. EMEND [Suspect]
     Indication: PROPHYLAXIS OF NAUSEA AND VOMITING
     Route: 048
     Dates: start: 20100517, end: 20100517
  2. MAGLAX [Concomitant]
     Route: 065
     Dates: start: 20100517, end: 20100531
  3. GASLON N [Concomitant]
     Route: 065
     Dates: start: 20100515, end: 20100519
  4. LOBU [Concomitant]
     Route: 065
     Dates: start: 20100512, end: 20100518
  5. SELBEX [Concomitant]
     Route: 065
     Dates: start: 20100512, end: 20100518
  6. PEMIROC [Concomitant]
     Route: 065
     Dates: start: 20100501, end: 20100515
  7. PEMIROC [Concomitant]
     Route: 065
     Dates: start: 20100516, end: 20100519
  8. GRANISETRON HYDROCHLORIDE [Concomitant]
     Route: 065
     Dates: start: 20100515, end: 20100519
  9. SOLU-MEDROL [Concomitant]
     Route: 065
     Dates: start: 20100515, end: 20100519
  10. VEPESID [Concomitant]
     Route: 065
     Dates: start: 20100515, end: 20100517
  11. BRIPLATIN [Concomitant]
     Route: 065
     Dates: start: 20100515, end: 20100518
  12. PRIMPERAN TAB [Concomitant]
     Route: 065
     Dates: start: 20100516, end: 20100516
  13. PRIMPERAN TAB [Concomitant]
     Route: 065
     Dates: start: 20100517, end: 20100517
  14. LASIX [Concomitant]
     Route: 065
     Dates: start: 20100516, end: 20100516
  15. LASIX [Concomitant]
     Route: 065
     Dates: start: 20100517, end: 20100519
  16. OXINORM [Concomitant]
     Route: 065
     Dates: start: 20100517, end: 20100531
  17. AMOBAN [Concomitant]
     Route: 065
     Dates: start: 20100512, end: 20100518

REACTIONS (4)
  - CONVULSION [None]
  - DEPRESSED LEVEL OF CONSCIOUSNESS [None]
  - EPISTAXIS [None]
  - FALL [None]
